FAERS Safety Report 15618128 (Version 2)
Quarter: 2019Q1

REPORT INFORMATION
  Report Type: Spontaneous
  Country: US (occurrence: US)
  Receive Date: 20181114
  Receipt Date: 20190227
  Transmission Date: 20190417
  Serious: Yes (Hospitalization)
  Sender: FDA-Public Use
  Company Number: US-ACTELION-A-US2018-181673

PATIENT
  Age: 60 Year
  Sex: Female
  Weight: 68.93 kg

DRUGS (1)
  1. UPTRAVI [Suspect]
     Active Substance: SELEXIPAG
     Indication: PULMONARY ARTERIAL HYPERTENSION
     Dosage: 200 MCG, BID
     Route: 048

REACTIONS (9)
  - Syncope [Unknown]
  - Headache [Unknown]
  - Dizziness [Unknown]
  - Pain in jaw [Unknown]
  - Nausea [Unknown]
  - Neck pain [Unknown]
  - Product dose omission [Unknown]
  - Hypotension [Unknown]
  - Loss of consciousness [Unknown]

NARRATIVE: CASE EVENT DATE: 20181102
